FAERS Safety Report 4331747-3 (Version None)
Quarter: 2004Q2

REPORT INFORMATION
  Report Type: 
  Country: None (occurrence: None)
  Receive Date: 20040405
  Receipt Date: 20030519
  Transmission Date: 20050107
  Serious: No
  Sender: FDA-Public Use
  Company Number: US-GLAXOSMITHKLINE-A0409302A

PATIENT
  Sex: Male

DRUGS (1)
  1. FLOVENT [Suspect]
     Indication: ASTHMA
     Route: 055

REACTIONS (3)
  - BLOOD PRESSURE INCREASED [None]
  - GASTRIC HAEMORRHAGE [None]
  - PSYCHOMOTOR HYPERACTIVITY [None]
